FAERS Safety Report 13414648 (Version 1)
Quarter: 2017Q2

REPORT INFORMATION
  Report Type: Spontaneous
  Country: HU (occurrence: HU)
  Receive Date: 20170407
  Receipt Date: 20170407
  Transmission Date: 20170830
  Serious: Yes (Congenital Anomaly, Other)
  Sender: FDA-Public Use
  Company Number: HU-GLAXOSMITHKLINE-HU2017GSK049275

PATIENT
  Sex: Male

DRUGS (1)
  1. ELONTRIL [Suspect]
     Active Substance: BUPROPION HYDROCHLORIDE
     Indication: OBSESSIVE-COMPULSIVE DISORDER
     Dosage: 150 MG, QD
     Route: 064
     Dates: start: 2010

REACTIONS (6)
  - Foetal exposure during pregnancy [Unknown]
  - Anger [Unknown]
  - Communication disorder [Unknown]
  - Abnormal behaviour [Unknown]
  - Autism spectrum disorder [Unknown]
  - Frontal lobe epilepsy [Unknown]

NARRATIVE: CASE EVENT DATE: 201605
